FAERS Safety Report 6489277-9 (Version None)
Quarter: 2009Q4

REPORT INFORMATION
  Report Type: 
  Country: None (occurrence: None)
  Receive Date: 20091210
  Receipt Date: 20090929
  Transmission Date: 20100525
  Serious: No
  Sender: FDA-Public Use
  Company Number: US-AMGEN-KDL366853

PATIENT
  Sex: Male
  Weight: 79.5 kg

DRUGS (4)
  1. ENBREL [Suspect]
     Indication: PSORIASIS
  2. HUMIRA [Suspect]
     Indication: PSORIASIS
     Route: 058
     Dates: start: 20080101
  3. BENZYLPENICILLIN POTASSIUM [Suspect]
  4. PREDNISONE [Concomitant]

REACTIONS (7)
  - INJECTION SITE ERYTHEMA [None]
  - INSOMNIA [None]
  - PHARYNGITIS STREPTOCOCCAL [None]
  - PRURITUS [None]
  - PSORIASIS [None]
  - RASH [None]
  - THERAPEUTIC RESPONSE DECREASED [None]
